FAERS Safety Report 12056296 (Version 1)
Quarter: 2016Q1

REPORT INFORMATION
  Report Type: Report from Study
  Country: US (occurrence: US)
  Receive Date: 20160209
  Receipt Date: 20160209
  Transmission Date: 20160526
  Serious: No
  Sender: FDA-Public Use
  Company Number: US-ABBVIE-15P-163-1475330-00

PATIENT
  Age: 46 Year
  Sex: Female

DRUGS (1)
  1. HUMIRA [Suspect]
     Active Substance: ADALIMUMAB
     Indication: RHEUMATOID ARTHRITIS
     Route: 065

REACTIONS (7)
  - Wrong technique in product usage process [Unknown]
  - Injection site papule [Not Recovered/Not Resolved]
  - Injection site haemorrhage [Recovered/Resolved]
  - Dysgeusia [Recovered/Resolved]
  - Ecchymosis [Unknown]
  - Incorrect dose administered [Unknown]
  - Injection site bruising [Not Recovered/Not Resolved]

NARRATIVE: CASE EVENT DATE: 20150930
